FAERS Safety Report 11651841 (Version 3)
Quarter: 2016Q1

REPORT INFORMATION
  Report Type: Spontaneous
  Country: US (occurrence: US)
  Receive Date: 20151022
  Receipt Date: 20160317
  Transmission Date: 20160525
  Serious: Yes (Death, Hospitalization, Other)
  Sender: FDA-Public Use
  Company Number: US-UNITED THERAPEUTICS-UNT-2015-013067

PATIENT
  Age: 41 Year
  Sex: Female
  Weight: 97.52 kg

DRUGS (3)
  1. LETAIRIS [Concomitant]
     Active Substance: AMBRISENTAN
     Indication: PRODUCT USED FOR UNKNOWN INDICATION
  2. ADCIRCA [Concomitant]
     Active Substance: TADALAFIL
     Indication: PRODUCT USED FOR UNKNOWN INDICATION
  3. REMODULIN [Suspect]
     Active Substance: TREPROSTINIL
     Indication: PULMONARY ARTERIAL HYPERTENSION
     Dosage: 0.0545 ?G/KG, CONTINUING
     Route: 041
     Dates: start: 20150701

REACTIONS (4)
  - Cardiac failure [Fatal]
  - Unresponsive to stimuli [Unknown]
  - Respiratory failure [Unknown]
  - Device issue [Unknown]

NARRATIVE: CASE EVENT DATE: 201510
